FAERS Safety Report 16885341 (Version 1)
Quarter: 2019Q4

REPORT INFORMATION
  Report Type: Spontaneous
  Country: US (occurrence: US)
  Receive Date: 20190809
  Receipt Date: 20190809
  Transmission Date: 20200122
  Serious: Yes (Other)
  Sender: FDA-Public Use
  Company Number: None

PATIENT
  Age: 44 Year
  Sex: Female
  Weight: 95.71 kg

DRUGS (5)
  1. APTIOM [Concomitant]
     Active Substance: ESLICARBAZEPINE ACETATE
  2. ZONISAMIDE. [Concomitant]
     Active Substance: ZONISAMIDE
  3. TOPIRAMATE. [Concomitant]
     Active Substance: TOPIRAMATE
  4. LEVOTHYROXINE. [Suspect]
     Active Substance: LEVOTHYROXINE
     Indication: SEIZURE
     Route: 048
     Dates: start: 20190309, end: 20190524
  5. LEVOTHYROXINE. [Concomitant]
     Active Substance: LEVOTHYROXINE

REACTIONS (2)
  - Alopecia [None]
  - Blood pressure decreased [None]
